FAERS Safety Report 9631569 (Version 1)
Quarter: 2013Q4

REPORT INFORMATION
  Report Type: Spontaneous
  Country: US (occurrence: None)
  Receive Date: 20131017
  Receipt Date: 20131017
  Transmission Date: 20140711
  Serious: Yes (Hospitalization)
  Sender: FDA-Public Use
  Company Number: None

PATIENT
  Age: 76 Year
  Sex: Male
  Weight: 81 kg

DRUGS (1)
  1. DIMENHYDRINATE [Suspect]
     Indication: NAUSEA
     Dates: end: 20131010

REACTIONS (2)
  - Mental status changes [None]
  - Overdose [None]
